FAERS Safety Report 8265925-8 (Version None)
Quarter: 2012Q2

REPORT INFORMATION
  Report Type: 
  Country: None (occurrence: None)
  Receive Date: 20120403
  Receipt Date: 20120321
  Transmission Date: 20120825
  Serious: Yes (Hospitalization, Other)
  Sender: FDA-Public Use
  Company Number: 2012030164

PATIENT
  Age: 85 Year
  Sex: Male

DRUGS (11)
  1. ENALAPRIL MALEATE [Concomitant]
  2. SIMVASTATIN [Concomitant]
  3. SELOKENZOC (METOPROLOL SUCCINATE) [Concomitant]
  4. IMDUR [Concomitant]
  5. PANOCOD (PARACETAMOL, CODEINE PHOSPHATE HEMIHYDRATE) [Concomitant]
  6. ACETAMINOPHEN [Concomitant]
  7. MOLLEPECT (BROMPHEXINHYDROCHLORIDE, EPHEDRINEHYDROCHLORIDE) [Concomitant]
  8. TORSEMIDE [Suspect]
     Indication: CARDIAC DISORDER
     Dosage: 40;20 MG (40 MG, 1 IN 1 D), ORAL
     Route: 048
     Dates: start: 20120101
  9. TORSEMIDE [Suspect]
     Indication: CARDIAC DISORDER
     Dosage: 40;20 MG (40 MG, 1 IN 1 D), ORAL
     Route: 048
     Dates: start: 20120102, end: 20120102
  10. WARFARIN SODIUM [Suspect]
     Dates: end: 20120102
  11. SPIRONOLACTONE [Suspect]
     Indication: CARDIAC DISORDER
     Dosage: 12 MG (12 MG, 1 IN 1 D),  ORAL
     Route: 048
     Dates: end: 20120102

REACTIONS (4)
  - DEHYDRATION [None]
  - FATIGUE [None]
  - DYSPNOEA [None]
  - BLOOD CREATININE INCREASED [None]
